FAERS Safety Report 24846212 (Version 1)
Quarter: 2025Q1

REPORT INFORMATION
  Report Type: Spontaneous
  Country: GB (occurrence: GB)
  Receive Date: 20250115
  Receipt Date: 20250115
  Transmission Date: 20250408
  Serious: Yes (Other)
  Sender: NOVARTIS
  Company Number: GB-002147023-NVSC2025GB005453

PATIENT
  Age: 19 Year
  Sex: Female

DRUGS (2)
  1. RYDAPT [Suspect]
     Active Substance: MIDOSTAURIN
     Indication: RUNX1 gene mutation
     Dosage: UNK, BID (50-100MG)
     Route: 065
  2. SORAFENIB [Concomitant]
     Active Substance: SORAFENIB
     Indication: Product used for unknown indication
     Route: 065
     Dates: start: 202001, end: 202007

REACTIONS (5)
  - Plasma cell myeloma [Unknown]
  - COVID-19 [Unknown]
  - Lung disorder [Unknown]
  - Alveolar proteinosis [Unknown]
  - Off label use [Unknown]

NARRATIVE: CASE EVENT DATE: 20230101
